FAERS Safety Report 4402660-8 (Version None)
Quarter: 2004Q3

REPORT INFORMATION
  Report Type: 
  Country: None (occurrence: None)
  Receive Date: 20040721
  Receipt Date: 20040713
  Transmission Date: 20050211
  Serious: Yes (Hospitalization)
  Sender: FDA-Public Use
  Company Number: 200416905GDDC

PATIENT
  Age: 69 Year
  Sex: Female

DRUGS (8)
  1. TAXOTERE [Suspect]
     Indication: BREAST CANCER METASTATIC
     Route: 042
     Dates: start: 20040608, end: 20040608
  2. NAVELBINE [Suspect]
     Indication: BREAST CANCER METASTATIC
     Route: 048
     Dates: start: 20040608, end: 20040622
  3. DIAPREL [Concomitant]
  4. SIOFOR [Concomitant]
  5. GLUCOBAY [Concomitant]
  6. TERTENSIF [Concomitant]
  7. EFFOX LONG [Concomitant]
  8. LOTENSIN [Concomitant]

REACTIONS (2)
  - DEPRESSION [None]
  - PSYCHOTIC DISORDER [None]
